FAERS Safety Report 7439267-4 (Version None)
Quarter: 2011Q2

REPORT INFORMATION
  Report Type: 
  Country: None (occurrence: None)
  Receive Date: 20110427
  Receipt Date: 20090125
  Transmission Date: 20111010
  Serious: Yes (Death, Hospitalization, Other)
  Sender: FDA-Public Use
  Company Number: US-BAYER-200911445NA

PATIENT
  Age: 75 Year
  Sex: Male
  Weight: 76.19 kg

DRUGS (20)
  1. FENTANYL [Concomitant]
  2. TRASYLOL [Suspect]
     Indication: CORONARY ARTERY BYPASS
     Dosage: 1 ML, INITIAL DOSE
     Route: 042
     Dates: start: 20051102, end: 20051102
  3. AMIODARONE [Concomitant]
     Dosage: 200 MG, UNK
     Route: 048
  4. LEVOPHED [Concomitant]
     Route: 042
  5. DOPAMINE HCL [Concomitant]
     Route: 042
  6. MIDAZOLAM [Concomitant]
  7. SYNTHROID [Concomitant]
     Dosage: 125 MEQ, UNK
     Route: 048
  8. LASIX [Concomitant]
     Dosage: 80 MG, UNK
     Route: 048
  9. MANNITOL [Concomitant]
     Dosage: 25 G, UNK
     Route: 042
  10. HEPARIN [Concomitant]
     Dosage: 10000 U, UNK
     Route: 042
  11. NORVASC [Concomitant]
  12. LISINOPRIL [Concomitant]
     Dosage: 20 MG, UNK
     Route: 048
  13. TRASYLOL [Suspect]
     Dosage: 50CC/HR INFUSION
     Route: 042
     Dates: start: 20051102, end: 20051102
  14. VYTORIN [Concomitant]
     Dosage: 10/81
     Route: 048
  15. ASPIRIN [Concomitant]
     Dosage: 81 MG, UNK
     Route: 048
  16. ANCEF [Concomitant]
     Route: 042
  17. TRASYLOL [Suspect]
     Indication: MITRAL VALVE REPLACEMENT
     Dosage: 200 ML LOADING DOSE
     Route: 042
     Dates: start: 20051102, end: 20051102
  18. RED BLOOD CELLS, CONCENTRATED [Concomitant]
     Dosage: 2 U, UNK
     Dates: start: 20051102
  19. ATENOLOL [Concomitant]
     Dosage: 25 MG, UNK
     Route: 048
  20. PHENYLEPHRINE HCL [Concomitant]
     Route: 042

REACTIONS (13)
  - MULTI-ORGAN FAILURE [None]
  - RENAL IMPAIRMENT [None]
  - RENAL FAILURE [None]
  - RENAL INJURY [None]
  - EMOTIONAL DISTRESS [None]
  - ANXIETY [None]
  - FEAR [None]
  - UNEVALUABLE EVENT [None]
  - ANHEDONIA [None]
  - INJURY [None]
  - DEATH [None]
  - STRESS [None]
  - PAIN [None]
